FAERS Safety Report 4866329-8 (Version None)
Quarter: 2005Q4

REPORT INFORMATION
  Report Type: 
  Country: None (occurrence: None)
  Receive Date: 20051221
  Receipt Date: 20051208
  Transmission Date: 20060501
  Serious: Yes (Hospitalization)
  Sender: FDA-Public Use
  Company Number: 2005BI021961

PATIENT
  Age: 50 Year
  Sex: Female
  Weight: 47.6277 kg

DRUGS (3)
  1. AVONEX [Suspect]
     Indication: MULTIPLE SCLEROSIS
     Dosage: 30 UG;QW;IM
     Route: 030
     Dates: start: 20000101
  2. AVONEX [Suspect]
     Indication: MULTIPLE SCLEROSIS
     Dosage: 30 UG;QW;IM
     Route: 030
  3. SYNTHROID [Concomitant]

REACTIONS (11)
  - CEREBRAL HAEMORRHAGE [None]
  - FALL [None]
  - HEAD INJURY [None]
  - HYPOAESTHESIA [None]
  - INFLUENZA LIKE ILLNESS [None]
  - NERVE COMPRESSION [None]
  - OSTEOPENIA [None]
  - PAIN [None]
  - POST PROCEDURAL COMPLICATION [None]
  - SCAR [None]
  - UPPER LIMB FRACTURE [None]
